FAERS Safety Report 20493888 (Version 1)
Quarter: 2022Q1

REPORT INFORMATION
  Report Type: Spontaneous
  Country: GB (occurrence: GB)
  Receive Date: 20220221
  Receipt Date: 20220221
  Transmission Date: 20220423
  Serious: Yes (Other)
  Sender: FDA-Public Use
  Company Number: None

PATIENT
  Sex: Female

DRUGS (6)
  1. PROTOPIC [Suspect]
     Active Substance: TACROLIMUS
     Indication: Product used for unknown indication
     Dosage: NOT REPORTED
     Dates: end: 20210612
  2. PROTOPIC [Suspect]
     Active Substance: TACROLIMUS
     Indication: Product used for unknown indication
     Dosage: NOT REPORTED
     Dates: end: 20210612
  3. BETNOVATE [Suspect]
     Active Substance: BETAMETHASONE
     Indication: Product used for unknown indication
     Dosage: 1G CONTAINING 0.25MG BETAMETHASONE?TWICE A DAY FOR A WEEK THEN WEAN DOWN
     Dates: end: 20210612
  4. CLOBETASOL [Suspect]
     Active Substance: CLOBETASOL
     Indication: Product used for unknown indication
     Dates: start: 2018, end: 20210612
  5. HYDROCORTISONE [Suspect]
     Active Substance: HYDROCORTISONE
     Indication: Product used for unknown indication
     Dosage: 1% W/W?WEAN DOWN TO HYDROCORTISONE TWICE A DAY FOR 3-5 DAYS, THEN TO WEAN DOWN THE DAYS USED
     Dates: end: 20210612
  6. PREDNISOLONE [Suspect]
     Active Substance: PREDNISOLONE
     Indication: Product used for unknown indication
     Dates: start: 20201110

REACTIONS (14)
  - Skin weeping [Recovering/Resolving]
  - Skin burning sensation [Recovering/Resolving]
  - Formication [Recovering/Resolving]
  - Pain [Recovering/Resolving]
  - Skin exfoliation [Recovering/Resolving]
  - Pruritus [Recovering/Resolving]
  - Rash [Recovering/Resolving]
  - Topical steroid withdrawal reaction [Recovering/Resolving]
  - Alopecia [Recovering/Resolving]
  - Eye swelling [Recovering/Resolving]
  - Neuralgia [Recovering/Resolving]
  - Lymphadenopathy [Recovering/Resolving]
  - Skin hypertrophy [Recovering/Resolving]
  - Insomnia [Recovering/Resolving]

NARRATIVE: CASE EVENT DATE: 20110101
